FAERS Safety Report 6625574-1 (Version None)
Quarter: 2010Q1

REPORT INFORMATION
  Report Type: 
  Country: None (occurrence: None)
  Receive Date: 20100223
  Receipt Date: 20091116
  Transmission Date: 20100710
  Serious: No
  Sender: FDA-Public Use
  Company Number: 8054472

PATIENT
  Sex: Female

DRUGS (2)
  1. CERTOLIZUMAB PEGOL                (UCB, INC) [Suspect]
     Dosage: SUBCUTANEOUS
     Route: 058
     Dates: start: 20090903, end: 20091029
  2. CERTOLIZUMAB PEGOL                (UCB, INC) [Suspect]
     Dosage: SUBCUTANEOUS
     Route: 058
     Dates: start: 20091105

REACTIONS (2)
  - OROPHARYNGEAL PAIN [None]
  - PYREXIA [None]
